FAERS Safety Report 8808974 (Version 1)
Quarter: 2012Q4

REPORT INFORMATION
  Report Type: Spontaneous
  Country: GB (occurrence: None)
  Receive Date: 20120920
  Receipt Date: 20120920
  Transmission Date: 20130627
  Serious: Yes (Hospitalization)
  Sender: FDA-Public Use
  Company Number: TUK2012A00249

PATIENT
  Age: 60 Year
  Sex: Male

DRUGS (8)
  1. PIOGLITAZONE HYDROCHLORIDE [Suspect]
     Indication: DRUG USE FOR UNKNOWN INDICATION
     Route: 048
     Dates: start: 20120225, end: 20120324
  2. BENDROFLUMETHIAZIDE (BENDROFLUMETHIAZIDE) [Concomitant]
  3. BUPRENORPHINE (BUPRENORPHINE HYDROCHLORIDE) [Concomitant]
  4. CO-CODAMOL (CODEINE PHOSPHATE, PARACETAMOL) [Concomitant]
  5. LERCANIDIPINE (LERCANIDIPINE) [Concomitant]
  6. ROSUVASTATIN (ROSUVASTATIN) [Concomitant]
  7. TADALAFIL (TADALAFIL) [Concomitant]
  8. TESTOSTERONE (TESTOSTERONE) [Concomitant]

REACTIONS (2)
  - Bladder cancer [None]
  - Transitional cell carcinoma [None]
